FAERS Safety Report 22064612 (Version 7)
Quarter: 2023Q2

REPORT INFORMATION
  Report Type: Report from Study
  Country: US (occurrence: US)
  Receive Date: 20230306
  Receipt Date: 20230606
  Transmission Date: 20230721
  Serious: Yes (Other)
  Sender: FDA-Public Use
  Company Number: US-JAZZ PHARMACEUTICALS-2022-US-026470

PATIENT
  Age: 24 Year
  Sex: Female

DRUGS (13)
  1. XYWAV [Suspect]
     Active Substance: CALCIUM OXYBATE\MAGNESIUM OXYBATE\POTASSIUM OXYBATE\SODIUM OXYBATE
     Indication: Narcolepsy
     Dosage: 2.25 GRAM, BID
     Route: 048
  2. XYWAV [Suspect]
     Active Substance: CALCIUM OXYBATE\MAGNESIUM OXYBATE\POTASSIUM OXYBATE\SODIUM OXYBATE
     Indication: Somnolence
  3. METHIMAZOLE [Suspect]
     Active Substance: METHIMAZOLE
     Indication: Product used for unknown indication
     Dosage: UNK
     Dates: start: 20230106
  4. PROPRANOLOL [Suspect]
     Active Substance: PROPRANOLOL HYDROCHLORIDE
     Indication: Product used for unknown indication
     Dosage: UNK
     Dates: start: 20230106
  5. TRAZODONE [Suspect]
     Active Substance: TRAZODONE HYDROCHLORIDE
     Indication: Product used for unknown indication
  6. MELATONIN [Concomitant]
     Active Substance: MELATONIN
     Indication: Product used for unknown indication
     Dosage: UNK
     Dates: start: 20230223
  7. PROZAC [Concomitant]
     Active Substance: FLUOXETINE HYDROCHLORIDE
     Indication: Product used for unknown indication
     Dosage: 10 MG PULVULE
     Dates: start: 20230104
  8. VENLAFAXINE HCL [Concomitant]
     Active Substance: VENLAFAXINE HYDROCHLORIDE
     Indication: Product used for unknown indication
     Dosage: UNK
     Dates: start: 20221228
  9. LIDOCAINE [Concomitant]
     Active Substance: LIDOCAINE
     Indication: Product used for unknown indication
     Dosage: UNK
     Dates: start: 20230119
  10. AZITHROMYCIN [Concomitant]
     Active Substance: AZITHROMYCIN
     Indication: Product used for unknown indication
     Dosage: UNK
     Dates: start: 20230120
  11. IBUPROFEN [Concomitant]
     Active Substance: IBUPROFEN
     Indication: Product used for unknown indication
     Dosage: CAPLET
     Dates: start: 20230120
  12. IRON [Concomitant]
     Active Substance: IRON
     Indication: Product used for unknown indication
     Dosage: UNK
     Dates: start: 20230124
  13. TYLENOL [Concomitant]
     Active Substance: ACETAMINOPHEN
     Indication: Product used for unknown indication
     Dosage: UNK
     Dates: start: 20230124

REACTIONS (39)
  - Hyperthyroidism [Unknown]
  - Hypothyroidism [Unknown]
  - Pericarditis [Unknown]
  - Bradycardia [Unknown]
  - Syncope [Unknown]
  - Pulmonary congestion [Unknown]
  - Autoimmune disorder [Unknown]
  - Dystonia [Unknown]
  - Sleep disorder [Unknown]
  - Faeces discoloured [Unknown]
  - Dyspepsia [Unknown]
  - Brain fog [Unknown]
  - Withdrawal syndrome [Unknown]
  - Gastrooesophageal reflux disease [Unknown]
  - Chest pain [Unknown]
  - Palpitations [Not Recovered/Not Resolved]
  - Heart rate increased [Unknown]
  - Hypotension [Unknown]
  - Migraine [Unknown]
  - Chest discomfort [Unknown]
  - Dyspnoea [Recovered/Resolved]
  - Anxiety [Unknown]
  - Insomnia [Unknown]
  - Paraesthesia [Unknown]
  - Decreased appetite [Unknown]
  - Dizziness [Unknown]
  - Viral infection [Unknown]
  - Thyroiditis [Unknown]
  - Post-acute COVID-19 syndrome [Unknown]
  - Hypersensitivity [Unknown]
  - Nausea [Unknown]
  - Vomiting [Unknown]
  - Lethargy [Unknown]
  - Bedridden [Unknown]
  - Orthostatic hypotension [Recovered/Resolved]
  - Somnolence [Unknown]
  - Tremor [Unknown]
  - Product dose omission issue [Unknown]
  - Product administration interrupted [Unknown]

NARRATIVE: CASE EVENT DATE: 20230105
